FAERS Safety Report 25966468 (Version 2)
Quarter: 2025Q4

REPORT INFORMATION
  Report Type: Spontaneous
  Country: CA (occurrence: CA)
  Receive Date: 20251028
  Receipt Date: 20251210
  Transmission Date: 20260118
  Serious: Yes (Hospitalization)
  Sender: ASTELLAS
  Company Number: CA-ASTELLAS-2025-AER-057711

PATIENT
  Age: 56 Year
  Sex: Female

DRUGS (1)
  1. VEOZAH [Suspect]
     Active Substance: FEZOLINETANT
     Indication: Product used for unknown indication
     Route: 065
     Dates: start: 20250910, end: 20250915

REACTIONS (4)
  - Back pain [Unknown]
  - Hepatitis acute [Unknown]
  - Jaundice [Unknown]
  - Chromaturia [Unknown]

NARRATIVE: CASE EVENT DATE: 20250901
